FAERS Safety Report 14951641 (Version 1)
Quarter: 2018Q2

REPORT INFORMATION
  Report Type: Spontaneous
  Country: JP (occurrence: JP)
  Receive Date: 20180530
  Receipt Date: 20180530
  Transmission Date: 20180711
  Serious: Yes (Other)
  Sender: FDA-Public Use
  Company Number: JP-BAYER-2018-098033

PATIENT
  Age: 74 Year
  Sex: Male

DRUGS (1)
  1. NEXAVAR [Suspect]
     Active Substance: SORAFENIB
     Dosage: DAILY DOSE 400 MG
     Route: 048
     Dates: start: 20170401

REACTIONS (4)
  - Diarrhoea [None]
  - Cachexia [None]
  - Blood albumin decreased [None]
  - Disease progression [None]

NARRATIVE: CASE EVENT DATE: 20170701
